FAERS Safety Report 16821769 (Version 1)
Quarter: 2019Q4

REPORT INFORMATION
  Report Type: Spontaneous
  Country: US (occurrence: US)
  Receive Date: 20190917
  Receipt Date: 20190917
  Transmission Date: 20200122
  Serious: Yes (Disabling)
  Sender: FDA-Public Use
  Company Number: None

PATIENT
  Age: 66 Year
  Sex: Female
  Weight: 72 kg

DRUGS (1)
  1. IC ROSUVASATIN CALCIUM TABLETS 5MG [Suspect]
     Active Substance: ROSUVASTATIN CALCIUM
     Indication: HYPERCHOLESTEROLAEMIA
     Dosage: ?          QUANTITY:90 TABLET(S);?
     Route: 048
     Dates: start: 20190912, end: 20190917

REACTIONS (5)
  - Headache [None]
  - Incontinence [None]
  - Hepatic steatosis [None]
  - Myalgia [None]
  - Diarrhoea [None]

NARRATIVE: CASE EVENT DATE: 20190915
